FAERS Safety Report 19621638 (Version 1)
Quarter: 2021Q3

REPORT INFORMATION
  Report Type: Spontaneous
  Country: RO (occurrence: RO)
  Receive Date: 20210728
  Receipt Date: 20210728
  Transmission Date: 20211014
  Serious: Yes (Death)
  Sender: FDA-Public Use
  Company Number: NVSC2021RO168521

PATIENT
  Age: 48 Year
  Sex: Male

DRUGS (6)
  1. SERETIDE [Concomitant]
     Active Substance: FLUTICASONE PROPIONATE\SALMETEROL XINAFOATE
     Indication: ASTHMA
     Dosage: UNK 2 (50/500 PCG 1PUFF)
     Route: 065
  2. REVLIMID [Suspect]
     Active Substance: LENALIDOMIDE
     Indication: PLASMA CELL MYELOMA RECURRENT
     Dosage: UNK
     Route: 065
     Dates: start: 20210624
  3. SALBUTAMOL [Concomitant]
     Active Substance: ALBUTEROL
     Indication: ASTHMA
     Dosage: UNK, SPRAY (1?2 PUFFS IF NEEDED WITH A MAXIMUM OF 6?8 PUFFS / DAY)
     Route: 065
  4. DARZALEX [Suspect]
     Active Substance: DARATUMUMAB
     Indication: PLASMA CELL MYELOMA RECURRENT
     Dosage: UNK
     Route: 042
     Dates: start: 20210624
  5. DEXAMETHASONE. [Suspect]
     Active Substance: DEXAMETHASONE
     Indication: PLASMA CELL MYELOMA RECURRENT
     Dosage: UNK
     Route: 065
     Dates: start: 20210624
  6. MODAFINIL. [Concomitant]
     Active Substance: MODAFINIL
     Indication: ASTHMA
     Dosage: 1CP
     Route: 065

REACTIONS (1)
  - Respiratory failure [Fatal]
